FAERS Safety Report 6159360-6 (Version None)
Quarter: 2009Q2

REPORT INFORMATION
  Report Type: 
  Country: None (occurrence: None)
  Receive Date: 20090417
  Receipt Date: 20090406
  Transmission Date: 20091009
  Serious: Yes (Death)
  Sender: FDA-Public Use
  Company Number: US-GENENTECH-280543

PATIENT
  Sex: Female

DRUGS (4)
  1. BLINDED BEVACIZUMAB [Suspect]
     Indication: MESOTHELIOMA MALIGNANT
     Dosage: UNK
     Route: 042
     Dates: start: 20031216, end: 20040219
  2. BLINDED PLACEBO [Suspect]
     Indication: MESOTHELIOMA MALIGNANT
     Dosage: UNK
     Route: 042
     Dates: start: 20031216, end: 20040219
  3. GEMCITABINE HCL [Suspect]
     Indication: MESOTHELIOMA
     Dosage: 1250 MG/M2, Q3W
     Route: 042
     Dates: start: 20031216
  4. CISPLATIN [Suspect]
     Indication: MESOTHELIOMA
     Dosage: 75 MG/M2, Q2D
     Route: 042
     Dates: start: 20031216

REACTIONS (3)
  - CARDIOVASCULAR DISORDER [None]
  - DISEASE PROGRESSION [None]
  - SUDDEN DEATH [None]
